FAERS Safety Report 15947130 (Version 1)
Quarter: 2019Q1

REPORT INFORMATION
  Report Type: Spontaneous
  Country: FR (occurrence: FR)
  Receive Date: 20190212
  Receipt Date: 20190212
  Transmission Date: 20190417
  Serious: Yes (Hospitalization, Other)
  Sender: FDA-Public Use
  Company Number: FR-AUROBINDO-AUR-APL-2019-006902

PATIENT

DRUGS (7)
  1. IRBESARTAN. [Suspect]
     Active Substance: IRBESARTAN
     Indication: HYPERTENSION
     Dosage: 300 MILLIGRAM, DAILY
     Route: 048
     Dates: end: 20181225
  2. DAFALGAN CODEINE [Suspect]
     Active Substance: ACETAMINOPHEN\CODEINE PHOSPHATE
     Indication: ANALGESIC INTERVENTION SUPPORTIVE THERAPY
     Dosage: 2 DOSAGE FORM, DAILY
     Route: 048
     Dates: end: 20181225
  3. TRANSULOSE [Suspect]
     Active Substance: LACTULOSE\MINERAL OIL\PARAFFIN
     Indication: CONSTIPATION
     Dosage: 1 DOSAGE FORM, DAILY
     Route: 048
     Dates: end: 20181225
  4. SIFROL [Concomitant]
     Active Substance: PRAMIPEXOLE
     Indication: RESTLESS LEGS SYNDROME
     Dosage: 0.5 DOSAGE FORM, DAILY
     Route: 048
     Dates: end: 20181225
  5. CACIT VITAMINE D3 [Suspect]
     Active Substance: CALCIUM CARBONATE\CHOLECALCIFEROL
     Indication: HYPOVITAMINOSIS
     Dosage: 3 DOSAGE FORM
     Route: 048
     Dates: end: 20181225
  6. ELIQUIS [Suspect]
     Active Substance: APIXABAN
     Indication: PAROXYSMAL ARRHYTHMIA
     Dosage: UNK
     Route: 048
     Dates: end: 20181206
  7. VAXIGRIPTETRA [Suspect]
     Active Substance: INFLUENZA VIRUS VACCINE QUADRIVALENT TYPE A+B
     Indication: INFLUENZA IMMUNISATION
     Dosage: 1 DOSAGE FORM
     Route: 065
     Dates: start: 201811, end: 201811

REACTIONS (2)
  - Meningorrhagia [Recovered/Resolved]
  - Thrombocytopenia [Recovering/Resolving]

NARRATIVE: CASE EVENT DATE: 20181206
